FAERS Safety Report 23880058 (Version 1)
Quarter: 2024Q2

REPORT INFORMATION
  Report Type: Spontaneous
  Country: KR (occurrence: KR)
  Receive Date: 20240521
  Receipt Date: 20240521
  Transmission Date: 20240715
  Serious: Yes (Other)
  Sender: FDA-Public Use
  Company Number: KR-009507513-2405KOR005328

PATIENT
  Age: 48 Year
  Sex: Female

DRUGS (1)
  1. PEMBROLIZUMAB [Suspect]
     Active Substance: PEMBROLIZUMAB
     Indication: Breast cancer
     Dosage: UNK
     Dates: start: 202306

REACTIONS (5)
  - Hypereosinophilic syndrome [Unknown]
  - Sarcoidosis [Unknown]
  - Malignant neoplasm progression [Unknown]
  - Positron emission tomogram abnormal [Unknown]
  - Lung consolidation [Unknown]

NARRATIVE: CASE EVENT DATE: 20230801
